FAERS Safety Report 9146450 (Version 1)
Quarter: 2013Q1

REPORT INFORMATION
  Report Type: Spontaneous
  Country: US (occurrence: None)
  Receive Date: 20130227
  Receipt Date: 20130227
  Transmission Date: 20140127
  Serious: Yes (Life-Threatening)
  Sender: FDA-Public Use
  Company Number: None

PATIENT
  Age: 6 Year
  Sex: Female
  Weight: 24.95 kg

DRUGS (1)
  1. MIDAZOLAM [Suspect]
     Indication: TOOTH EXTRACTION
     Route: 048

REACTIONS (6)
  - Paranoia [None]
  - Conversion disorder [None]
  - Hallucination [None]
  - Anger [None]
  - Abnormal behaviour [None]
  - Memory impairment [None]
